FAERS Safety Report 14155674 (Version 2)
Quarter: 2017Q4

REPORT INFORMATION
  Report Type: Spontaneous
  Country: US (occurrence: US)
  Receive Date: 20171103
  Receipt Date: 20171127
  Transmission Date: 20180321
  Serious: No
  Sender: FDA-Public Use
  Company Number: US-PFIZER INC-2017473644

PATIENT
  Age: 68 Year
  Sex: Female

DRUGS (2)
  1. FASLODEX [Concomitant]
     Active Substance: FULVESTRANT
     Dosage: UNK, EVERY 28 DAYS
  2. IBRANCE [Suspect]
     Active Substance: PALBOCICLIB
     Indication: BREAST CANCER METASTATIC
     Dosage: 125 MG, CYCLIC (ONCE DAILY FOR 21 DAYS/7 DAYS OFF)
     Dates: start: 20170623, end: 20171005

REACTIONS (1)
  - Neoplasm progression [Recovered/Resolved]

NARRATIVE: CASE EVENT DATE: 20170623
